FAERS Safety Report 7523417-5 (Version None)
Quarter: 2011Q2

REPORT INFORMATION
  Report Type: 
  Country: None (occurrence: None)
  Receive Date: 20110603
  Receipt Date: 20110525
  Transmission Date: 20111010
  Serious: Yes (Other)
  Sender: FDA-Public Use
  Company Number: B0723728A

PATIENT
  Sex: Female

DRUGS (3)
  1. NOZINAN [Concomitant]
     Indication: MANIA
     Route: 048
     Dates: start: 20110501
  2. LAMICTAL [Suspect]
     Indication: BIPOLAR DISORDER
     Dosage: 400MG PER DAY
     Route: 048
     Dates: start: 20110501
  3. TOPAMAX [Concomitant]
     Indication: MANIA
     Dosage: 150MG PER DAY
     Route: 048
     Dates: start: 20110501

REACTIONS (5)
  - ANAEMIA [None]
  - OEDEMA [None]
  - BODY TEMPERATURE INCREASED [None]
  - SKIN DISORDER [None]
  - MANIA [None]
